FAERS Safety Report 9736719 (Version 1)
Quarter: 2013Q4

REPORT INFORMATION
  Report Type: Spontaneous
  Country: US (occurrence: US)
  Receive Date: 20131206
  Receipt Date: 20131206
  Transmission Date: 20140711
  Serious: No
  Sender: FDA-Public Use
  Company Number: US-009507513-1311USA009496

PATIENT
  Age: 52 Year
  Sex: Female

DRUGS (1)
  1. ZIOPTAN [Suspect]
     Indication: GLAUCOMA
     Dosage: 1 DF, QPM
     Route: 047
     Dates: start: 20131112, end: 20131119

REACTIONS (1)
  - Eye pain [Recovered/Resolved]
